FAERS Safety Report 24041509 (Version 1)
Quarter: 2024Q3

REPORT INFORMATION
  Report Type: Spontaneous
  Country: US (occurrence: US)
  Receive Date: 20240702
  Receipt Date: 20240702
  Transmission Date: 20241017
  Serious: No
  Sender: SAREPTA THERAPEUTICS
  Company Number: US-SAREPTA THERAPEUTICS INC.-SRP2023-003875

PATIENT
  Sex: Male
  Weight: 56.19 kg

DRUGS (4)
  1. EXONDYS 51 [Suspect]
     Active Substance: ETEPLIRSEN
     Indication: Duchenne muscular dystrophy
     Dosage: 1600 MILLIGRAM, WEEKLY
     Route: 042
     Dates: start: 20230509
  2. METOCLOPRAMIDE HYDROCHLORIDE [Concomitant]
     Active Substance: METOCLOPRAMIDE HYDROCHLORIDE
     Indication: Product used for unknown indication
     Dosage: 5 MILLIGRAM, Q6H
     Route: 048
     Dates: start: 20230509
  3. VITAMINS NOS [Concomitant]
     Active Substance: VITAMINS
     Indication: Product used for unknown indication
     Dosage: 1 TAB, QD
     Route: 048
     Dates: start: 20230509
  4. OMEPRAZOLE DELAYED RELEASE [OMEPRAZOLE] [Concomitant]
     Indication: Product used for unknown indication
     Dosage: 20 MILLIGRAM, QD
     Route: 048
     Dates: start: 20230509

REACTIONS (5)
  - Muscular weakness [Unknown]
  - Wound secretion [Unknown]
  - Scratch [Unknown]
  - Pruritus [Unknown]
  - Pyrexia [Unknown]
